FAERS Safety Report 8859558 (Version 2)
Quarter: 2012Q4

REPORT INFORMATION
  Report Type: 
  Country: JP (occurrence: JP)
  Receive Date: 20121025
  Receipt Date: 20121220
  Transmission Date: 20130627
  Serious: Yes (Hospitalization, Other)
  Sender: FDA-Public Use
  Company Number: JP-009507513-1210JPN006097

PATIENT
  Age: 65 Year
  Sex: Female
  Weight: 62 kg

DRUGS (12)
  1. PEGINTRON [Suspect]
     Indication: CHRONIC HEPATITIS C
     Dosage: 1.2 Microgram per kilogram, qw
     Route: 058
  2. PEGINTRON [Suspect]
     Dosage: 1 Microgram per kilogram, qd
     Route: 058
     Dates: start: 20120824, end: 20121004
  3. REBETOL [Suspect]
     Indication: CHRONIC HEPATITIS C
     Dosage: 400 mg, qd
     Route: 048
  4. REBETOL [Suspect]
     Dosage: 200 mg, qd
     Route: 048
     Dates: start: 20120824, end: 20121004
  5. TELAVIC [Suspect]
     Indication: CHRONIC HEPATITIS C
     Dosage: 1500 mg, qd
     Route: 048
     Dates: start: 20120727, end: 20120813
  6. TELAVIC [Suspect]
     Dosage: 1000 mg, qd
     Route: 048
     Dates: start: 20120814
  7. TELAVIC [Suspect]
     Dosage: 1000 mg, qd
     Route: 048
     Dates: start: 20120824, end: 20121004
  8. CONIEL [Concomitant]
     Indication: HYPERTENSION
     Dosage: 4 mg, qd
     Route: 048
     Dates: end: 20120820
  9. CONIEL [Concomitant]
     Dosage: 4 mg, qd
     Route: 048
  10. RESTAMIN [Concomitant]
     Dosage: Daily dose unknown, proper dose/ as needed
     Route: 061
     Dates: start: 20120730, end: 20120820
  11. NEXIUM [Concomitant]
     Dosage: 20 mg, qd, formulation: POR
     Route: 048
     Dates: start: 20120731, end: 20120820
  12. MUCOSTA [Concomitant]
     Indication: PROPHYLAXIS
     Dosage: 1 tab/day as needed
     Route: 048
     Dates: end: 20121016

REACTIONS (2)
  - Anaemia [Not Recovered/Not Resolved]
  - Depressive symptom [Recovering/Resolving]
